FAERS Safety Report 9224622 (Version 1)
Quarter: 2013Q1

REPORT INFORMATION
  Report Type: Spontaneous
  Country: US (occurrence: US)
  Receive Date: 20120917
  Receipt Date: 20120917
  Transmission Date: 20140127
  Serious: Yes (Other)
  Sender: FDA-Public Use
  Company Number: FK201102753

PATIENT
  Age: 63 Year
  Sex: Male
  Weight: 59.29 kg

DRUGS (2)
  1. CISPLATIN [Suspect]
     Indication: BLADDER NEOPLASM
     Route: 042
     Dates: start: 20111007, end: 20111020
  2. GEMCITABINE [Suspect]
     Route: 042
     Dates: start: 20111006, end: 20111020

REACTIONS (2)
  - Thrombocytopenia [None]
  - Neutropenia [None]
